FAERS Safety Report 7167225-6 (Version None)
Quarter: 2010Q4

REPORT INFORMATION
  Report Type: 
  Country: None (occurrence: None)
  Receive Date: 20101213
  Receipt Date: 20101213
  Transmission Date: 20110411
  Serious: Yes (Other)
  Sender: FDA-Public Use
  Company Number: None

PATIENT
  Age: 68 Year
  Sex: Male
  Weight: 67.1324 kg

DRUGS (1)
  1. VENTOLIN HFA [Suspect]
     Indication: ASTHMA
     Dosage: 2 PUFFS AS REQUIRED PO
     Route: 048
     Dates: start: 20100910, end: 20101210

REACTIONS (9)
  - BLOOD GLUCOSE INCREASED [None]
  - BLOOD PRESSURE SYSTOLIC INCREASED [None]
  - DRUG EFFECT DELAYED [None]
  - INSOMNIA [None]
  - MALAISE [None]
  - PALPITATIONS [None]
  - PRODUCT QUALITY ISSUE [None]
  - STRESS [None]
  - TENSION [None]
